FAERS Safety Report 13072948 (Version 1)
Quarter: 2016Q4

REPORT INFORMATION
  Report Type: Spontaneous
  Country: US (occurrence: US)
  Receive Date: 20161229
  Receipt Date: 20161229
  Transmission Date: 20170207
  Serious: No
  Sender: FDA-Public Use
  Company Number: US-PFIZER INC-2016599493

PATIENT

DRUGS (1)
  1. LYRICA [Suspect]
     Active Substance: PREGABALIN
     Dosage: UNK

REACTIONS (5)
  - Gait disturbance [Recovered/Resolved]
  - Swelling face [Recovered/Resolved]
  - Hypokinesia [Recovered/Resolved]
  - Drug hypersensitivity [Recovered/Resolved]
  - Intentional product use issue [Unknown]
